FAERS Safety Report 6154460-9 (Version None)
Quarter: 2009Q2

REPORT INFORMATION
  Report Type: 
  Country: None (occurrence: None)
  Receive Date: 20090410
  Receipt Date: 20090410
  Transmission Date: 20091009
  Serious: Yes (Death, Life-Threatening)
  Sender: FDA-Public Use
  Company Number: None

PATIENT
  Age: 85 Year
  Sex: Male
  Weight: 61.2 kg

DRUGS (1)
  1. MORPHINE [Suspect]
     Indication: PAIN
     Dosage: 15 MG ONCE PO
     Route: 048
     Dates: start: 20090211, end: 20090211

REACTIONS (7)
  - AREFLEXIA [None]
  - CARDIAC ARREST [None]
  - ELECTROMECHANICAL DISSOCIATION [None]
  - RESPIRATORY DEPRESSION [None]
  - RESPIRATORY DISTRESS [None]
  - SKIN DISCOLOURATION [None]
  - UNRESPONSIVE TO STIMULI [None]
